FAERS Safety Report 5491499-0 (Version None)
Quarter: 2007Q4

REPORT INFORMATION
  Report Type: 
  Country: None (occurrence: None)
  Receive Date: 20071022
  Receipt Date: 20071010
  Transmission Date: 20080405
  Serious: Yes (Hospitalization)
  Sender: FDA-Public Use
  Company Number: PHHO2007DE15763

PATIENT
  Age: 43 Year
  Sex: Male
  Weight: 99 kg

DRUGS (3)
  1. CERTICAN [Suspect]
     Indication: LUNG TRANSPLANT
     Dosage: 2000 MG / DAY
     Route: 048
     Dates: start: 20061006
  2. NEORAL [Suspect]
     Indication: LUNG TRANSPLANT
  3. DILZEM [Suspect]

REACTIONS (9)
  - ATRIOVENTRICULAR BLOCK SECOND DEGREE [None]
  - BRADYCARDIA [None]
  - C-REACTIVE PROTEIN INCREASED [None]
  - DRUG LEVEL ABOVE THERAPEUTIC [None]
  - DYSPNOEA EXERTIONAL [None]
  - INFECTION [None]
  - PHARYNGOLARYNGEAL PAIN [None]
  - PULMONARY HYPERTENSION [None]
  - VERTIGO [None]
